FAERS Safety Report 11833585 (Version 1)
Quarter: 2015Q4

REPORT INFORMATION
  Report Type: Spontaneous
  Country: US (occurrence: US)
  Receive Date: 20151214
  Receipt Date: 20151214
  Transmission Date: 20160305
  Serious: Yes (Hospitalization, Other)
  Sender: FDA-Public Use
  Company Number: US-ASTELLAS-2015US040610

PATIENT
  Age: 68 Year
  Sex: Male

DRUGS (2)
  1. MYRBETRIQ [Suspect]
     Active Substance: MIRABEGRON
     Indication: MICTURITION URGENCY
     Route: 065
     Dates: start: 201509
  2. OXYBUTYNIN [Concomitant]
     Active Substance: OXYBUTYNIN
     Indication: PRODUCT USED FOR UNKNOWN INDICATION
     Dosage: UNK UNK, UNKNOWN FREQ.
     Route: 065

REACTIONS (12)
  - Dizziness [Unknown]
  - Headache [Unknown]
  - Nausea [Unknown]
  - Sinus disorder [Unknown]
  - Thirst [Unknown]
  - Vision blurred [Unknown]
  - Amnesia [Unknown]
  - Arthralgia [Unknown]
  - Diarrhoea [Unknown]
  - Hypertension [Unknown]
  - Confusional state [Unknown]
  - Dry mouth [Unknown]

NARRATIVE: CASE EVENT DATE: 20151022
